FAERS Safety Report 23622338 (Version 3)
Quarter: 2024Q2

REPORT INFORMATION
  Report Type: Spontaneous
  Country: US (occurrence: US)
  Receive Date: 20240312
  Receipt Date: 20240529
  Transmission Date: 20240717
  Serious: No
  Sender: FDA-Public Use
  Company Number: US-PFIZER INC-PV202400025759

PATIENT
  Age: 7 Year
  Sex: Female

DRUGS (1)
  1. GENOTROPIN [Suspect]
     Active Substance: SOMATROPIN
     Dosage: 0.6MG DAILY
     Dates: start: 20240208

REACTIONS (3)
  - Device delivery system issue [Unknown]
  - Poor quality device used [Unknown]
  - Drug dose omission by device [Unknown]

NARRATIVE: CASE EVENT DATE: 20240201
